FAERS Safety Report 10046057 (Version 2)
Quarter: 2014Q2

REPORT INFORMATION
  Report Type: Spontaneous
  Country: FR (occurrence: FR)
  Receive Date: 20140331
  Receipt Date: 20140402
  Transmission Date: 20141212
  Serious: Yes (Hospitalization)
  Sender: FDA-Public Use
  Company Number: FR-ROCHE-1369127

PATIENT
  Age: 49 Year
  Sex: Male

DRUGS (5)
  1. VALIUM [Suspect]
     Indication: EPILEPSY
     Dosage: 10 MG
     Route: 048
     Dates: end: 20140217
  2. RENITEC [Suspect]
     Indication: HYPERTENSION
     Dosage: 5 MG
     Route: 048
     Dates: end: 20140217
  3. LAMICTAL [Suspect]
     Indication: EPILEPSY
     Dosage: 200 MG
     Route: 048
     Dates: end: 20140217
  4. LARGACTIL [Suspect]
     Indication: EPILEPSY
     Dosage: 100 MG
     Route: 048
     Dates: end: 20140217
  5. AUGMENTIN [Concomitant]
     Indication: PNEUMONIA ASPIRATION

REACTIONS (2)
  - Hypotension [Recovered/Resolved]
  - Oxygen consumption increased [Recovered/Resolved]
